FAERS Safety Report 25732542 (Version 1)
Quarter: 2025Q3

REPORT INFORMATION
  Report Type: Spontaneous
  Country: US (occurrence: US)
  Receive Date: 20250827
  Receipt Date: 20250827
  Transmission Date: 20251020
  Serious: No
  Sender: BRISTOL-MYERS SQUIBB COMPANY
  Company Number: US-BRISTOL-MYERS SQUIBB COMPANY-2025-118526

PATIENT
  Age: 66 Year
  Sex: Female

DRUGS (6)
  1. SPRYCEL [Suspect]
     Active Substance: DASATINIB
     Indication: Chronic myeloid leukaemia
  2. ASPIRIN [Suspect]
     Active Substance: ASPIRIN
     Indication: Product used for unknown indication
  3. ATORVASTATIN CALCIUM [Concomitant]
     Active Substance: ATORVASTATIN CALCIUM
     Indication: Product used for unknown indication
  4. OMEGA 3 [COLECALCIFEROL;DOCOSAHEXAENOIC ACID;EICOSAPENTAENOIC ACID;RET [Concomitant]
     Indication: Product used for unknown indication
  5. METOPROLOL SUCCINATE [Concomitant]
     Active Substance: METOPROLOL SUCCINATE
     Indication: Hypertension
  6. VITAMIN D3 [Concomitant]
     Active Substance: CHOLECALCIFEROL
     Indication: Product used for unknown indication

REACTIONS (1)
  - Petechiae [Unknown]

NARRATIVE: CASE EVENT DATE: 20250822
